FAERS Safety Report 12053550 (Version 2)
Quarter: 2016Q1

REPORT INFORMATION
  Report Type: Spontaneous
  Country: BR (occurrence: BR)
  Receive Date: 20160209
  Receipt Date: 20160315
  Transmission Date: 20160526
  Serious: Yes (Other)
  Sender: FDA-Public Use
  Company Number: PHHY2016BR014891

PATIENT
  Age: 59 Year
  Sex: Male
  Weight: 85 kg

DRUGS (4)
  1. OMEPRAZOLE. [Concomitant]
     Active Substance: OMEPRAZOLE
     Indication: PRODUCT USED FOR UNKNOWN INDICATION
     Dosage: 20 MG, UNK
     Route: 065
  2. SIMVASTATIN SANDOZ [Suspect]
     Active Substance: SIMVASTATIN
     Indication: BLOOD CHOLESTEROL
     Dosage: 1 DF, QD
     Route: 048
  3. ENALAPRIL [Concomitant]
     Active Substance: ENALAPRIL
     Indication: PRODUCT USED FOR UNKNOWN INDICATION
     Dosage: 10 MG, UNK
     Route: 065
  4. SIMVASTATIN SANDOZ [Suspect]
     Active Substance: SIMVASTATIN
     Indication: BLOOD TRIGLYCERIDES

REACTIONS (11)
  - Asthenia [Not Recovered/Not Resolved]
  - Pain in extremity [Not Recovered/Not Resolved]
  - Dyspnoea [Unknown]
  - Asphyxia [Unknown]
  - Burning sensation [Unknown]
  - Irritability [Unknown]
  - Hepatic infection [Recovering/Resolving]
  - Anaemia [Recovering/Resolving]
  - Pain [Recovering/Resolving]
  - Kidney infection [Recovering/Resolving]
  - Confusional state [Unknown]

NARRATIVE: CASE EVENT DATE: 20151006
